FAERS Safety Report 17884969 (Version 1)
Quarter: 2020Q2

REPORT INFORMATION
  Report Type: Spontaneous
  Country: CN (occurrence: CN)
  Receive Date: 20200611
  Receipt Date: 20200611
  Transmission Date: 20200714
  Serious: Yes (Other)
  Sender: FDA-Public Use
  Company Number: CN-ROCHE-2617912

PATIENT
  Age: 62 Year
  Sex: Female
  Weight: 73 kg

DRUGS (4)
  1. SODIUM CHLORIDE. [Concomitant]
     Active Substance: SODIUM CHLORIDE
     Dosage: SOLVENT FOR PACLITAXEL FOR INJECTION (ALBUMIN BOUND)
     Route: 041
     Dates: start: 20200518, end: 20200518
  2. AVASTIN [Suspect]
     Active Substance: BEVACIZUMAB
     Indication: CERVIX CARCINOMA
     Route: 041
     Dates: start: 20200518, end: 20200518
  3. SODIUM CHLORIDE. [Concomitant]
     Active Substance: SODIUM CHLORIDE
     Indication: CERVIX CARCINOMA
     Dosage: SOLVENT FOR BEVACIZUMAB
     Route: 041
     Dates: start: 20200518, end: 20200518
  4. PACLITAXEL. [Suspect]
     Active Substance: PACLITAXEL
     Indication: CERVIX CARCINOMA
     Route: 041
     Dates: start: 20200518, end: 20200518

REACTIONS (4)
  - Off label use [Unknown]
  - Intentional product use issue [Unknown]
  - Rash [Recovered/Resolved]
  - Pruritus [Recovered/Resolved]

NARRATIVE: CASE EVENT DATE: 20200520
